FAERS Safety Report 25232562 (Version 2)
Quarter: 2025Q3

REPORT INFORMATION
  Report Type: Spontaneous
  Country: US (occurrence: US)
  Receive Date: 20250424
  Receipt Date: 20250725
  Transmission Date: 20251021
  Serious: No
  Sender: SANOFI AVENTIS
  Company Number: US-SA-2025SA116952

PATIENT
  Age: 50 Year
  Sex: Male

DRUGS (19)
  1. DUPIXENT [Suspect]
     Active Substance: DUPILUMAB
     Indication: Asthma
     Route: 058
     Dates: start: 20250429, end: 20250429
  2. DUPIXENT [Suspect]
     Active Substance: DUPILUMAB
     Route: 058
     Dates: start: 2025
  3. ADVAIR HFA [Concomitant]
     Active Substance: FLUTICASONE PROPIONATE\SALMETEROL XINAFOATE
  4. ALBUTEROL SULFATE [Concomitant]
     Active Substance: ALBUTEROL SULFATE
  5. AMLODIPINE [Concomitant]
     Active Substance: AMLODIPINE BESYLATE
  6. ANUCORT-HC [Concomitant]
     Active Substance: HYDROCORTISONE ACETATE
  7. ASPIRIN [Concomitant]
     Active Substance: ASPIRIN
  8. BREO ELLIPTA [Concomitant]
     Active Substance: FLUTICASONE FUROATE\VILANTEROL TRIFENATATE
  9. CLOBETASOL [Concomitant]
     Active Substance: CLOBETASOL
  10. DIAZEPAM [Concomitant]
     Active Substance: DIAZEPAM
  11. DIAZEPAM [Concomitant]
     Active Substance: DIAZEPAM
  12. IBUPROFEN [Concomitant]
     Active Substance: IBUPROFEN
  13. LISINOPRIL [Concomitant]
     Active Substance: LISINOPRIL
  14. MONTELUKAST [Concomitant]
     Active Substance: MONTELUKAST
  15. OSELTAMIVIR [Concomitant]
     Active Substance: OSELTAMIVIR
  16. PREDNISONE [Concomitant]
     Active Substance: PREDNISONE
  17. TIZANIDINE [Concomitant]
     Active Substance: TIZANIDINE
  18. FLUTICASONE PROPIONATE\SALMETEROL XINAFOATE [Concomitant]
     Active Substance: FLUTICASONE PROPIONATE\SALMETEROL XINAFOATE
  19. ARNUITY ELLIPTA [Concomitant]
     Active Substance: FLUTICASONE FUROATE

REACTIONS (2)
  - Impaired quality of life [Unknown]
  - Asthma [Unknown]

NARRATIVE: CASE EVENT DATE: 20250101
